FAERS Safety Report 11544846 (Version 3)
Quarter: 2015Q4

REPORT INFORMATION
  Report Type: Spontaneous
  Country: US (occurrence: US)
  Receive Date: 20150924
  Receipt Date: 20151204
  Transmission Date: 20160304
  Serious: Yes (Death, Hospitalization)
  Sender: FDA-Public Use
  Company Number: US-ACTAVIS-2015-20368

PATIENT
  Age: 15 Year
  Sex: Female
  Weight: 41 kg

DRUGS (2)
  1. LIDOCAINE (WATSON LABORATORIES) [Suspect]
     Active Substance: LIDOCAINE
     Indication: INTENTIONAL OVERDOSE
  2. LIDOCAINE (WATSON LABORATORIES) [Suspect]
     Active Substance: LIDOCAINE
     Indication: STOMATITIS
     Dosage: 49 MG/KG, TOTAL
     Route: 048

REACTIONS (5)
  - Drug level above therapeutic [Fatal]
  - Seizure [Fatal]
  - Cardiac arrest [Fatal]
  - Intentional overdose [Fatal]
  - Brain death [Fatal]
